FAERS Safety Report 7437954-5 (Version None)
Quarter: 2011Q2

REPORT INFORMATION
  Report Type: 
  Country: None (occurrence: None)
  Receive Date: 20110426
  Receipt Date: 20110414
  Transmission Date: 20111010
  Serious: Yes (Hospitalization)
  Sender: FDA-Public Use
  Company Number: FR-ELI_LILLY_AND_COMPANY-FR201104004114

PATIENT
  Sex: Female

DRUGS (9)
  1. EFFIENT [Suspect]
     Dosage: 10 MG, QD
     Route: 048
     Dates: start: 20101214, end: 20110103
  2. CARDENSIEL [Concomitant]
     Dosage: 160 MG, QD
     Route: 048
  3. TAHOR [Concomitant]
     Dosage: 80 MG, QD
     Route: 048
  4. NEXIUM [Concomitant]
     Dosage: 20 MG, QD
     Route: 048
  5. SOLU-MEDROL [Concomitant]
     Dosage: UNK, UNKNOWN
     Route: 065
  6. KARDEGIC [Concomitant]
     Dosage: 160 MG, QD
     Route: 048
  7. PLAVIX [Concomitant]
     Dosage: 150 MG, QD
     Route: 048
     Dates: start: 20101208, end: 20101213
  8. LOVENOX [Concomitant]
     Dosage: 60 (UNKNOWN UNITS)
     Route: 065
     Dates: start: 20101208
  9. AERIUS [Concomitant]
     Dosage: UNK, UNKNOWN
     Route: 065

REACTIONS (2)
  - SKIN EXFOLIATION [None]
  - ERYTHEMA [None]
